FAERS Safety Report 9059224 (Version 2)
Quarter: 2013Q1

REPORT INFORMATION
  Report Type: Spontaneous
  Country: US (occurrence: US)
  Receive Date: 20130211
  Receipt Date: 20130305
  Transmission Date: 20140127
  Serious: Yes (Other)
  Sender: FDA-Public Use
  Company Number: US-ABBOTT-13P-163-1044578-00

PATIENT
  Sex: Female
  Weight: 77.18 kg

DRUGS (17)
  1. TRILIPIX [Suspect]
     Indication: BLOOD CHOLESTEROL INCREASED
     Dates: start: 200911, end: 201203
  2. TRILIPIX [Suspect]
     Indication: BLOOD TRIGLYCERIDES INCREASED
  3. NAPROXEN SODIUM [Concomitant]
     Indication: ARTHRITIS
  4. ZANAFLEX [Concomitant]
     Indication: MUSCLE SPASMS
  5. ZANAFLEX [Concomitant]
     Indication: INTERVERTEBRAL DISC PROTRUSION
  6. XANAX [Concomitant]
     Indication: NEURALGIA
  7. XANAX [Concomitant]
     Indication: RHEUMATOID ARTHRITIS
  8. XANAX [Concomitant]
     Indication: SYSTEMIC LUPUS ERYTHEMATOSUS
  9. PLAQUENIL [Concomitant]
     Indication: RHEUMATOID ARTHRITIS
  10. PLAQUENIL [Concomitant]
     Indication: SYSTEMIC LUPUS ERYTHEMATOSUS
  11. NORCO [Concomitant]
     Indication: PAIN
  12. NORCO [Concomitant]
     Indication: HEADACHE
  13. AMOXICILLIN [Concomitant]
     Indication: TOOTH DISORDER
  14. ALLEGRA [Concomitant]
     Indication: SYSTEMIC LUPUS ERYTHEMATOSUS
  15. ALLEGRA [Concomitant]
     Indication: URTICARIA
  16. LUNESTA [Concomitant]
     Indication: INSOMNIA
  17. VENTOLIN [Concomitant]
     Indication: ASTHMA

REACTIONS (11)
  - Nephrolithiasis [Recovered/Resolved]
  - Cerebral calcification [Not Recovered/Not Resolved]
  - Cerebral calcification [Unknown]
  - Gait disturbance [Recovered/Resolved]
  - Activities of daily living impaired [Recovered/Resolved]
  - Hypercalcaemia [Recovered/Resolved]
  - Movement disorder [Recovered/Resolved]
  - Sensory loss [Recovered/Resolved]
  - Myalgia [Recovered/Resolved]
  - Muscular weakness [Recovered/Resolved]
  - Myopathy toxic [Recovered/Resolved]
